FAERS Safety Report 10076473 (Version 1)
Quarter: 2014Q2

REPORT INFORMATION
  Report Type: Spontaneous
  Country: US (occurrence: US)
  Receive Date: 20140414
  Receipt Date: 20140414
  Transmission Date: 20141212
  Serious: No
  Sender: FDA-Public Use
  Company Number: US-TEVA-474748USA

PATIENT
  Age: 28 Year
  Sex: Female

DRUGS (2)
  1. COPAXONE 40 MG [Suspect]
     Indication: MULTIPLE SCLEROSIS
     Dates: start: 20131122
  2. STEROID [Suspect]
     Route: 042
     Dates: start: 20140402, end: 20140404

REACTIONS (5)
  - Pain [Not Recovered/Not Resolved]
  - Pain [Not Recovered/Not Resolved]
  - Influenza like illness [Not Recovered/Not Resolved]
  - Insomnia [Not Recovered/Not Resolved]
  - Myalgia [Not Recovered/Not Resolved]
